FAERS Safety Report 7719978-3 (Version None)
Quarter: 2011Q3

REPORT INFORMATION
  Report Type: 
  Country: None (occurrence: None)
  Receive Date: 20110831
  Receipt Date: 20110823
  Transmission Date: 20111222
  Serious: No
  Sender: FDA-Public Use
  Company Number: US-BIOGENIDEC-2011BI032703

PATIENT
  Sex: Male

DRUGS (1)
  1. TYSABRI [Suspect]
     Indication: MULTIPLE SCLEROSIS
     Route: 042
     Dates: start: 20060801

REACTIONS (5)
  - GOUT [None]
  - HYPOAESTHESIA [None]
  - BLOOD PRESSURE INCREASED [None]
  - RENAL IMPAIRMENT [None]
  - BLOOD URIC ACID INCREASED [None]
